FAERS Safety Report 8252027-X (Version None)
Quarter: 2012Q2

REPORT INFORMATION
  Report Type: 
  Country: None (occurrence: None)
  Receive Date: 20120402
  Receipt Date: 20110325
  Transmission Date: 20120825
  Serious: No
  Sender: FDA-Public Use
  Company Number: US-ABBOTT-11P-163-0804351-00

PATIENT
  Sex: Male
  Weight: 99.09 kg

DRUGS (5)
  1. TESTOSTERONE [Suspect]
     Indication: BLOOD TESTOSTERONE DECREASED
     Dosage: DAILY DOSE: 5 GRAM(S), VIA PUMP
     Route: 062
     Dates: start: 20110101, end: 20110201
  2. MESALAZINE [Concomitant]
     Indication: COLITIS ULCERATIVE
     Dosage: DAILY DOSE: 2 DOSAGE FORM
     Route: 065
  3. TERIPARATIDE [Concomitant]
     Indication: OSTEOPOROSIS
     Dosage: DAILY DOSE:  UNKNOWN
     Route: 065
  4. TESTOSTERONE [Suspect]
     Dosage: DAILY DOSE: 7.5 GRAM(S), VIA PUMP
     Route: 062
     Dates: start: 20110213, end: 20110321
  5. TESTOSTERONE [Suspect]
     Dosage: DAILY DOSE: 10 MILLIGRAM(S), VIA PUMP
     Route: 062
     Dates: start: 20110319, end: 20110322

REACTIONS (3)
  - ERECTILE DYSFUNCTION [None]
  - DRUG INEFFECTIVE [None]
  - LIBIDO DECREASED [None]
